FAERS Safety Report 5950551-3 (Version None)
Quarter: 2008Q4

REPORT INFORMATION
  Report Type: 
  Country: None (occurrence: None)
  Receive Date: 20081022
  Receipt Date: 20080609
  Transmission Date: 20090506
  Serious: No
  Sender: FDA-Public Use
  Company Number: ALL1-2008-01724

PATIENT
  Age: 7 Year
  Sex: Male
  Weight: 41.3 kg

DRUGS (3)
  1. VYVANSE [Suspect]
     Indication: ATTENTION DEFICIT/HYPERACTIVITY DISORDER
     Dosage: 30 MG, 1X/DAY: QD (WEEKDAYS ONLY) ORAL
     Route: 048
     Dates: start: 20080401
  2. ALBUTEROL  /00139501 (SALBUTAMOL) [Concomitant]
  3. PULMICORT [Concomitant]

REACTIONS (3)
  - EXTRASYSTOLES [None]
  - HEART RATE INCREASED [None]
  - INSOMNIA [None]
